FAERS Safety Report 5012751-9 (Version None)
Quarter: 2006Q2

REPORT INFORMATION
  Report Type: 
  Country: None (occurrence: None)
  Receive Date: 20060530
  Receipt Date: 20060119
  Transmission Date: 20061013
  Serious: Yes (Other)
  Sender: FDA-Public Use
  Company Number: US-BRISTOL-MYERS SQUIBB COMPANY-13256276

PATIENT
  Age: 61 Year
  Sex: Male
  Weight: 97 kg

DRUGS (7)
  1. ERBITUX [Suspect]
     Indication: COLORECTAL CANCER
     Route: 042
     Dates: start: 20051021, end: 20051021
  2. ATROPINE [Concomitant]
  3. BENADRYL [Concomitant]
     Indication: PREMEDICATION
     Dates: start: 20051021
  4. CAMPTOSAR [Concomitant]
     Indication: COLORECTAL CANCER
     Dosage: DID NOT RECEIVE A DOSE ON 21-OCT-2005.
     Route: 042
  5. PROCRIT [Concomitant]
  6. TYLENOL (GELTAB) [Concomitant]
     Indication: PREMEDICATION
     Dates: start: 20051021
  7. XELODA [Concomitant]

REACTIONS (1)
  - INFUSION RELATED REACTION [None]
